FAERS Safety Report 5026148-9 (Version None)
Quarter: 2006Q2

REPORT INFORMATION
  Report Type: 
  Country: None (occurrence: None)
  Receive Date: 20060608
  Receipt Date: 20020509
  Transmission Date: 20061013
  Serious: No
  Sender: FDA-Public Use
  Company Number: 2002-05-0749

PATIENT
  Sex: Male
  Weight: 87 kg

DRUGS (12)
  1. ETHYOL [Suspect]
     Indication: ADVERSE DRUG REACTION
     Dosage: SUBCUTANEOUS
     Route: 058
     Dates: start: 20020215, end: 20020322
  2. RADIATION THERAPY [Suspect]
     Indication: TONSIL CANCER
     Dosage: OTHER
  3. ZOCOR [Concomitant]
  4. LANOXIN [Concomitant]
  5. LISINOPRIL [Concomitant]
  6. RELAFEN [Concomitant]
  7. ASCORBIC ACID [Concomitant]
  8. VITAMIN E [Concomitant]
  9. VITAMIN B6 [Concomitant]
  10. MAGNESIUM [Concomitant]
  11. GLYBURIDE [Concomitant]
  12. COMPAZINE [Concomitant]

REACTIONS (6)
  - CANDIDIASIS [None]
  - EATING DISORDER [None]
  - NAUSEA [None]
  - REFUSAL OF TREATMENT BY PATIENT [None]
  - SALIVA ALTERED [None]
  - WEIGHT DECREASED [None]
